FAERS Safety Report 8441081-8 (Version None)
Quarter: 2012Q2

REPORT INFORMATION
  Report Type: 
  Country: None (occurrence: None)
  Receive Date: 20120615
  Receipt Date: 20110531
  Transmission Date: 20120825
  Serious: No
  Sender: FDA-Public Use
  Company Number: US-NOVEN-11US002544

PATIENT
  Sex: Male

DRUGS (1)
  1. DAYTRANA [Suspect]
     Indication: PRODUCT USED FOR UNKNOWN INDICATION
     Dosage: 10 MG, QD
     Route: 062
     Dates: start: 20110528

REACTIONS (4)
  - OFF LABEL USE [None]
  - DRUG PRESCRIBING ERROR [None]
  - PRODUCT QUALITY ISSUE [None]
  - NO ADVERSE EVENT [None]
